FAERS Safety Report 13992726 (Version 2)
Quarter: 2017Q4

REPORT INFORMATION
  Report Type: Spontaneous
  Country: US (occurrence: US)
  Receive Date: 20170920
  Receipt Date: 20171122
  Transmission Date: 20180321
  Serious: No
  Sender: FDA-Public Use
  Company Number: US-JNJFOC-20170810032

PATIENT
  Sex: Female
  Weight: 72.58 kg

DRUGS (8)
  1. NIZORAL A-D [Suspect]
     Active Substance: KETOCONAZOLE
     Indication: DRY SKIN
     Route: 061
  2. NIZORAL A-D [Suspect]
     Active Substance: KETOCONAZOLE
     Indication: DRY SKIN
     Dosage: STRENGTH 1 PERCENT, QUARTER SIZED AMOUNT FOR 3-4 TIMES A WEEK
     Route: 061
     Dates: start: 20170807, end: 201708
  3. NIZORAL A-D [Suspect]
     Active Substance: KETOCONAZOLE
     Indication: SEBORRHOEIC DERMATITIS
     Dosage: STRENGTH 1 PERCENT, QUARTER SIZED AMOUNT FOR 3-4 TIMES A WEEK
     Route: 061
     Dates: start: 20170807, end: 201708
  4. NIZORAL A-D [Suspect]
     Active Substance: KETOCONAZOLE
     Indication: SEBORRHOEIC DERMATITIS
     Route: 061
  5. ATORVASTATIN [Concomitant]
     Active Substance: ATORVASTATIN
     Indication: BLOOD CHOLESTEROL INCREASED
     Route: 065
  6. LISINOPRIL. [Concomitant]
     Active Substance: LISINOPRIL
     Indication: HYPERTENSION
     Route: 065
  7. NIZORAL A-D [Suspect]
     Active Substance: KETOCONAZOLE
     Indication: DRY SKIN
     Route: 061
     Dates: start: 201708, end: 20170810
  8. NIZORAL A-D [Suspect]
     Active Substance: KETOCONAZOLE
     Indication: SEBORRHOEIC DERMATITIS
     Route: 061
     Dates: start: 201708, end: 20170810

REACTIONS (2)
  - Hair texture abnormal [Recovered/Resolved]
  - Drug ineffective for unapproved indication [Unknown]

NARRATIVE: CASE EVENT DATE: 2014
